FAERS Safety Report 5088497-8 (Version None)
Quarter: 2006Q3

REPORT INFORMATION
  Report Type: 
  Country: None (occurrence: None)
  Receive Date: 20060822
  Receipt Date: 20060809
  Transmission Date: 20061208
  Serious: Yes (Hospitalization, Other)
  Sender: FDA-Public Use
  Company Number: 2006095739

PATIENT
  Age: 57 Year
  Sex: Male

DRUGS (1)
  1. SULPERAZON (SULBACTAM, CEFOPERAZONE) [Suspect]
     Indication: ENTERITIS
     Dosage: 3 GRAM (1.5 GRAM,2 IN 1 D), INTRAVENOUS
     Route: 042

REACTIONS (2)
  - PETECHIAE [None]
  - PROTHROMBIN TIME PROLONGED [None]
